FAERS Safety Report 17614699 (Version 2)
Quarter: 2020Q2

REPORT INFORMATION
  Report Type: Spontaneous
  Country: JP (occurrence: JP)
  Receive Date: 20200402
  Receipt Date: 20200416
  Transmission Date: 20200713
  Serious: Yes (Hospitalization, Other)
  Sender: FDA-Public Use
  Company Number: NVSJ2020JP003910

PATIENT
  Age: 94 Year
  Sex: Female

DRUGS (1)
  1. REVOLADE TAB [Suspect]
     Active Substance: ELTROMBOPAG
     Indication: IMMUNE THROMBOCYTOPENIA
     Dosage: 12.5 MG, UNK
     Route: 048

REACTIONS (6)
  - Dysphagia [Unknown]
  - Cerebral infarction [Unknown]
  - Respiratory symptom [Unknown]
  - Concomitant disease aggravated [Unknown]
  - Wrong technique in product usage process [Unknown]
  - Pneumonia aspiration [Unknown]

NARRATIVE: CASE EVENT DATE: 201912
